FAERS Safety Report 10009393 (Version 3)
Quarter: 2014Q2

REPORT INFORMATION
  Report Type: Spontaneous
  Country: GB (occurrence: GB)
  Receive Date: 20140313
  Receipt Date: 20140417
  Transmission Date: 20141212
  Serious: Yes (Death)
  Sender: FDA-Public Use
  Company Number: PHHY2014GB030333

PATIENT
  Age: 63 Year
  Sex: Male

DRUGS (14)
  1. PARACETAMOL [Suspect]
     Dosage: 500 MG, UNK
     Route: 048
  2. SALBUTAMOL [Suspect]
     Dosage: 100 UG, UNK
     Route: 055
  3. LISINOPRIL [Suspect]
     Dosage: 10 MG, UNK
  4. NYSTATIN [Suspect]
     Dosage: 100000 IU, UNK
  5. TRAMADOL HYDROCHLORIDE [Suspect]
     Dosage: 50 MG, QD
     Route: 048
  6. FOSAMAX [Suspect]
     Dosage: 70 MG, QW
     Route: 048
  7. HUMALOG [Suspect]
     Dosage: 100 IU/ML
  8. HUMULIN [Suspect]
     Dosage: 100 IU/ML
  9. SERETIDE [Suspect]
     Dosage: 500 U, UNK
  10. SINGULAIR [Suspect]
     Dosage: 10 MG, UNK
  11. SPIRIVA [Suspect]
     Indication: CHRONIC OBSTRUCTIVE PULMONARY DISEASE
     Dosage: 18 UG, UNK
  12. BUMETANIDE [Suspect]
     Dosage: 1 MG, UNK
  13. INSULIN ISOPHANE [Suspect]
     Dosage: 100 IU/ML
  14. INSUMAN COMB [Suspect]
     Dosage: 100 IU/ML

REACTIONS (1)
  - Lobar pneumonia [Fatal]
